FAERS Safety Report 9856970 (Version 3)
Quarter: 2014Q2

REPORT INFORMATION
  Report Type: Spontaneous
  Country: US (occurrence: US)
  Receive Date: 20140130
  Receipt Date: 20140410
  Transmission Date: 20141212
  Serious: Yes (Hospitalization, Other)
  Sender: FDA-Public Use
  Company Number: US-SA-FLUD-1001602

PATIENT
  Age: 64 Year
  Sex: 0
  Weight: 94.1 kg

DRUGS (14)
  1. FLUDARA [Suspect]
     Indication: CHRONIC LYMPHOCYTIC LEUKAEMIA
     Dosage: FREQUENCY: DAYS 1, 2 , 3 Q MONTH
     Route: 042
     Dates: start: 20110816, end: 20120105
  2. RITUXAN [Suspect]
     Indication: CHRONIC LYMPHOCYTIC LEUKAEMIA
     Dosage: UNK
     Route: 042
     Dates: start: 20110816, end: 20120103
  3. CYCLOPHOSPHAMIDE [Suspect]
     Indication: CHRONIC LYMPHOCYTIC LEUKAEMIA
     Dosage: FREQUENCY: DAYS 1,2,3 Q MONTH
     Route: 042
     Dates: start: 20110816, end: 20120105
  4. ACYCLOVIR [Concomitant]
     Indication: PROPHYLAXIS
     Dates: start: 20120622
  5. AMIODARONE [Concomitant]
     Indication: ARRHYTHMIA
     Dates: start: 20120618, end: 20120831
  6. ACETYLSALICYLIC ACID [Concomitant]
     Indication: SUPPLEMENTATION THERAPY
  7. DAPSONE [Concomitant]
     Indication: PROPHYLAXIS
     Dates: start: 20120622
  8. FOLIC ACID [Concomitant]
     Indication: SUPPLEMENTATION THERAPY
  9. LASIX [Concomitant]
     Indication: HYPERTENSION
     Dates: start: 20120711, end: 20121007
  10. METOPROLOL [Concomitant]
     Indication: HYPERTENSION
     Dates: start: 20120630, end: 20121001
  11. THIAMINE [Concomitant]
     Indication: SUPPLEMENTATION THERAPY
     Dates: start: 20120711, end: 20121007
  12. COMBIVENT [Concomitant]
     Indication: ASTHMA
     Dosage: DOSE:8 PUFF(S)
     Dates: start: 20120711, end: 20121002
  13. PROTONIX [Concomitant]
     Indication: GASTRITIS
     Dates: start: 20120607, end: 20120831
  14. ZOFRAN [Concomitant]
     Indication: NAUSEA

REACTIONS (5)
  - Intussusception [Recovered/Resolved]
  - Gastrointestinal arteriovenous malformation [Recovered/Resolved]
  - Haemorrhagic anaemia [Recovered/Resolved]
  - Pancytopenia [Unknown]
  - Gastrointestinal haemorrhage [Recovered/Resolved]
